FAERS Safety Report 17004673 (Version 1)
Quarter: 2019Q4

REPORT INFORMATION
  Report Type: Other
  Country: IT (occurrence: IT)
  Receive Date: 20191107
  Receipt Date: 20191107
  Transmission Date: 20200122
  Serious: Yes (Life-Threatening)
  Sender: FDA-Public Use
  Company Number: IT-VITRUVIAS THERAPEUTICS-2076585

PATIENT
  Age: 3 Year
  Sex: Male

DRUGS (1)
  1. PROPAFENONE HYDROCHLORIDE. [Suspect]
     Active Substance: PROPAFENONE HYDROCHLORIDE

REACTIONS (2)
  - Accidental exposure to product by child [Recovered/Resolved]
  - Ventricular tachycardia [Recovered/Resolved]
